FAERS Safety Report 13357345 (Version 2)
Quarter: 2017Q2

REPORT INFORMATION
  Report Type: Spontaneous
  Country: PL (occurrence: PL)
  Receive Date: 20170322
  Receipt Date: 20170404
  Transmission Date: 20170830
  Serious: Yes (Life-Threatening, Other)
  Sender: FDA-Public Use
  Company Number: PL-ROCHE-1871432

PATIENT
  Sex: Male
  Weight: 65 kg

DRUGS (10)
  1. MEGALIA [Concomitant]
  2. POMEGRANATE [Concomitant]
     Active Substance: POMEGRANATE
  3. MILK THISTLE [Concomitant]
     Active Substance: MILK THISTLE
  4. SILICON [Concomitant]
     Active Substance: SILICON
  5. CURCUMIN [Concomitant]
     Active Substance: CURCUMIN
  6. NUTRIDRINK [Concomitant]
  7. CURAMED [Concomitant]
  8. ACEROLA [Concomitant]
     Active Substance: ACEROLA
  9. MACA [Concomitant]
  10. ERIVEDGE [Suspect]
     Active Substance: VISMODEGIB
     Indication: BASAL CELL CARCINOMA
     Route: 065

REACTIONS (14)
  - Pain [Not Recovered/Not Resolved]
  - Influenza [Unknown]
  - Asthenia [Unknown]
  - Metastases to lung [Unknown]
  - Viral upper respiratory tract infection [Unknown]
  - Pain [Unknown]
  - Radiation sickness syndrome [Not Recovered/Not Resolved]
  - Metastasis [Unknown]
  - Asthenia [Not Recovered/Not Resolved]
  - Alopecia [Not Recovered/Not Resolved]
  - Recurrent cancer [Unknown]
  - Therapeutic response decreased [Unknown]
  - Muscle spasms [Unknown]
  - Metastases to skin [Unknown]
